FAERS Safety Report 12983258 (Version 2)
Quarter: 2016Q4

REPORT INFORMATION
  Report Type: Spontaneous
  Country: JP (occurrence: JP)
  Receive Date: 20161129
  Receipt Date: 20161207
  Transmission Date: 20170207
  Serious: Yes (Other)
  Sender: FDA-Public Use
  Company Number: JP-TEVA-714094ISR

PATIENT
  Age: 60 Year
  Sex: Female

DRUGS (5)
  1. IMATINIB [Suspect]
     Active Substance: IMATINIB
     Indication: GASTROINTESTINAL STROMAL TUMOUR
     Dosage: 400 MILLIGRAM DAILY; 400 MG/DAY REDUCED TO 300 MG/DAY
     Route: 065
     Dates: start: 200905
  2. REGORAFENIB [Suspect]
     Active Substance: REGORAFENIB
     Indication: GASTROINTESTINAL STROMAL TUMOUR
     Dosage: 160 MILLIGRAM DAILY; 160 MG/DAY REDUCED TO 120 MG/DAY
     Route: 065
     Dates: start: 2013
  3. IMATINIB [Suspect]
     Active Substance: IMATINIB
     Dosage: 300 MILLIGRAM DAILY; 300 MG/DAY
     Route: 065
  4. NILOTINIB [Suspect]
     Active Substance: NILOTINIB
     Indication: GASTROINTESTINAL STROMAL TUMOUR
     Dosage: 800 MILLIGRAM DAILY; 800 MG/DAY REDUCED TO 400 MG/DAY
     Route: 065
     Dates: start: 2011
  5. SUNITINIB [Suspect]
     Active Substance: SUNITINIB
     Indication: GASTROINTESTINAL STROMAL TUMOUR
     Dosage: 50 MILLIGRAM DAILY; 50 MG/DAY REDUCED TO 37.5 MG/DAY
     Route: 065
     Dates: start: 2012

REACTIONS (8)
  - Palmar-plantar erythrodysaesthesia syndrome [Unknown]
  - Pyrexia [Unknown]
  - Alanine aminotransferase increased [Unknown]
  - Lipase [Unknown]
  - Drug resistance [Unknown]
  - Drug eruption [Unknown]
  - Aspartate aminotransferase increased [Unknown]
  - Stomatitis [Unknown]
